FAERS Safety Report 7306227-3 (Version None)
Quarter: 2011Q1

REPORT INFORMATION
  Report Type: 
  Country: None (occurrence: None)
  Receive Date: 20110222
  Receipt Date: 20110215
  Transmission Date: 20110831
  Serious: Yes (Death, Hospitalization, Other)
  Sender: FDA-Public Use
  Company Number: PHHY2011TW12863

PATIENT
  Age: 66 Year
  Sex: Female

DRUGS (2)
  1. VANCOMYCIN [Suspect]
     Dosage: 1 G, ON DAY 3
     Route: 033
  2. VANCOMYCIN [Suspect]
     Indication: PNEUMONIA ASPIRATION
     Dosage: 1 G, FOR DAYS WAS ADMINISTERED FROM DAYS 6-22
     Route: 042

REACTIONS (5)
  - ENTEROCOCCAL INFECTION [None]
  - PROCEDURAL HYPOTENSION [None]
  - SEPTIC SHOCK [None]
  - LEUKOCYTOSIS [None]
  - PERITONITIS [None]
